FAERS Safety Report 8162073-2 (Version None)
Quarter: 2012Q1

REPORT INFORMATION
  Report Type: 
  Country: None (occurrence: None)
  Receive Date: 20120224
  Receipt Date: 20110622
  Transmission Date: 20120608
  Serious: Yes (Other)
  Sender: FDA-Public Use
  Company Number: US-BRISTOL-MYERS SQUIBB COMPANY-15849490

PATIENT
  Age: 67 Year
  Sex: Male

DRUGS (5)
  1. METFORMIN HCL [Suspect]
     Dates: start: 20110512
  2. GLIMEPIRIDE [Concomitant]
  3. MULTI-VITAMINS [Concomitant]
  4. ACTOS [Concomitant]
  5. KOMBIGLYZE XR [Suspect]
     Dosage: 1DF=2.5/1000. UNIT NOT SPECIFIED
     Dates: end: 20110220

REACTIONS (4)
  - MEDICATION ERROR [None]
  - ABDOMINAL PAIN [None]
  - HYPOGLYCAEMIA [None]
  - OVERDOSE [None]
